FAERS Safety Report 7469558-2 (Version None)
Quarter: 2011Q2

REPORT INFORMATION
  Report Type: 
  Country: None (occurrence: None)
  Receive Date: 20110510
  Receipt Date: 20110503
  Transmission Date: 20111010
  Serious: Yes (Other)
  Sender: FDA-Public Use
  Company Number: PHFR2011GB02861

PATIENT
  Sex: Female

DRUGS (1)
  1. CLOZARIL [Suspect]
     Indication: SCHIZOPHRENIA
     Route: 048
     Dates: start: 20110129, end: 20110425

REACTIONS (5)
  - SALIVARY HYPERSECRETION [None]
  - SEDATION [None]
  - WEIGHT INCREASED [None]
  - REBOUND EFFECT [None]
  - RESPIRATORY DISORDER [None]
